FAERS Safety Report 17006134 (Version 2)
Quarter: 2019Q4

REPORT INFORMATION
  Report Type: Spontaneous
  Country: TH (occurrence: TH)
  Receive Date: 20191107
  Receipt Date: 20191223
  Transmission Date: 20200122
  Serious: Yes (Hospitalization, Other)
  Sender: FDA-Public Use
  Company Number: TH-ASTELLAS-2019US043736

PATIENT
  Age: 57 Year
  Sex: Male

DRUGS (17)
  1. VORICONAZOLE. [Interacting]
     Active Substance: VORICONAZOLE
     Indication: PRODUCT USED FOR UNKNOWN INDICATION
     Route: 048
     Dates: start: 20181019
  2. PREDNISOLONE. [Concomitant]
     Active Substance: PREDNISOLONE
     Route: 048
  3. METFORMIN [Concomitant]
     Active Substance: METFORMIN HYDROCHLORIDE
     Indication: PRODUCT USED FOR UNKNOWN INDICATION
     Route: 048
  4. PROGRAF [Interacting]
     Active Substance: TACROLIMUS
     Dosage: 1.5 MG, UNKNOWN FREQ. (DAILY DOSE)
     Route: 065
     Dates: start: 20181104
  5. FLUCONAZOLE. [Concomitant]
     Active Substance: FLUCONAZOLE
     Indication: PRODUCT USED FOR UNKNOWN INDICATION
     Route: 048
  6. ENTECAVIR. [Concomitant]
     Active Substance: ENTECAVIR
     Indication: PRODUCT USED FOR UNKNOWN INDICATION
     Route: 048
  7. PROGRAF [Interacting]
     Active Substance: TACROLIMUS
     Dosage: 7.5 MG, UNKNOWN FREQ. (DAILY DOSE)
     Route: 065
  8. VALACYCLOVIR [VALACICLOVIR HYDROCHLORIDE] [Concomitant]
     Indication: PRODUCT USED FOR UNKNOWN INDICATION
     Route: 048
  9. PROGRAF [Interacting]
     Active Substance: TACROLIMUS
     Dosage: 7.5 MG, UNKNOWN FREQ. (DAILY DOSE)
     Route: 065
     Dates: start: 20181024
  10. MYFORTIC [Concomitant]
     Active Substance: MYCOPHENOLATE SODIUM
     Indication: PRODUCT USED FOR UNKNOWN INDICATION
     Route: 048
  11. PROGRAF [Interacting]
     Active Substance: TACROLIMUS
     Dosage: 3 MG, UNKNOWN FREQ. (DAILY DOSE)
     Route: 065
     Dates: start: 20181029
  12. PROGRAF [Suspect]
     Active Substance: TACROLIMUS
     Indication: PROPHYLAXIS AGAINST TRANSPLANT REJECTION
     Route: 048
  13. PROGRAF [Interacting]
     Active Substance: TACROLIMUS
     Dosage: 1.5 MG, UNKNOWN FREQ. (DAILY DOSE)
     Route: 065
     Dates: start: 20181102
  14. PREDNISOLONE. [Concomitant]
     Active Substance: PREDNISOLONE
     Indication: PRODUCT USED FOR UNKNOWN INDICATION
     Route: 048
  15. AMLODIPINE [Concomitant]
     Active Substance: AMLODIPINE BESYLATE
     Indication: PRODUCT USED FOR UNKNOWN INDICATION
     Route: 048
  16. PROGRAF [Interacting]
     Active Substance: TACROLIMUS
     Dosage: 5 MG, UNKNOWN FREQ. (DAILY DOSE)
     Route: 065
     Dates: start: 20181014
  17. COTRIMOXAZOLE [Concomitant]
     Active Substance: SULFAMETHOXAZOLE\TRIMETHOPRIM
     Indication: PRODUCT USED FOR UNKNOWN INDICATION
     Route: 048

REACTIONS (8)
  - Pneumonia [Recovered/Resolved]
  - Pyrexia [Recovered/Resolved]
  - Nasal septum perforation [Unknown]
  - Drug interaction [Unknown]
  - Acinetobacter infection [Unknown]
  - Immunosuppressant drug level increased [Recovered/Resolved]
  - Liver transplant rejection [Recovered/Resolved]
  - Epistaxis [Recovered/Resolved]

NARRATIVE: CASE EVENT DATE: 20180813
